FAERS Safety Report 9752957 (Version 1)
Quarter: 2013Q4

REPORT INFORMATION
  Report Type: Spontaneous
  Country: ES (occurrence: ES)
  Receive Date: 20131213
  Receipt Date: 20131213
  Transmission Date: 20140711
  Serious: Yes (Other)
  Sender: FDA-Public Use
  Company Number: ES-JNJFOC-20131203321

PATIENT
  Sex: Female

DRUGS (1)
  1. DUROGESIC [Suspect]
     Indication: PRODUCT USED FOR UNKNOWN INDICATION
     Route: 062

REACTIONS (7)
  - Poisoning [Unknown]
  - Infection [Unknown]
  - Overdose [Unknown]
  - Application site burn [Unknown]
  - Application site ulcer [Unknown]
  - Application site reaction [Unknown]
  - Wrong technique in drug usage process [Unknown]
